FAERS Safety Report 17820446 (Version 6)
Quarter: 2020Q4

REPORT INFORMATION
  Report Type: Report from Study
  Country: None (occurrence: BE)
  Receive Date: 20200525
  Receipt Date: 20201123
  Transmission Date: 20210113
  Serious: Yes (Hospitalization, Other)
  Sender: FDA-Public Use
  Company Number: BE-ABBVIE-19S-013-2652429-00

PATIENT
  Sex: Female
  Weight: 46 kg

DRUGS (26)
  1. LIPITOR [Concomitant]
     Active Substance: ATORVASTATIN CALCIUM
     Indication: PRODUCT USED FOR UNKNOWN INDICATION
     Route: 065
  2. DOMPERIDONE [Concomitant]
     Active Substance: DOMPERIDONE
     Indication: PRODUCT USED FOR UNKNOWN INDICATION
     Route: 065
  3. TRAZOLAN [Concomitant]
     Active Substance: TRAZODONE HYDROCHLORIDE
     Indication: PRODUCT USED FOR UNKNOWN INDICATION
  4. DUODOPA [Suspect]
     Active Substance: CARBIDOPA\LEVODOPA
     Indication: PARKINSON^S DISEASE
     Dosage: MD= 1.5ML CD= 1.0ML/HR DURING 16HRS ED= 1ML
     Route: 050
     Dates: start: 20170403, end: 20170407
  5. DUODOPA [Suspect]
     Active Substance: CARBIDOPA\LEVODOPA
     Dosage: MD= 2.3ML CD= 2.8ML/HR DURING 16HRS ED= 2.2ML
     Route: 050
     Dates: start: 20190102, end: 20190128
  6. DUODOPA [Suspect]
     Active Substance: CARBIDOPA\LEVODOPA
     Dosage: MD=2.5ML;CD=2.8ML/HR DURING 16HRS;ED=2.2ML
     Route: 050
     Dates: start: 20190430, end: 20190506
  7. STALEVO 50 [Concomitant]
     Indication: PRODUCT USED FOR UNKNOWN INDICATION
     Dosage: FORM STRENGTH: 50MG/12.5MG/200MG RESCUE MEDICATION
     Route: 065
  8. AMLOR [Concomitant]
     Active Substance: AMLODIPINE BESYLATE
     Indication: PRODUCT USED FOR UNKNOWN INDICATION
     Route: 065
  9. TEMESTA [Concomitant]
     Indication: PRODUCT USED FOR UNKNOWN INDICATION
     Route: 065
  10. ISOTEN [Concomitant]
     Active Substance: BISOPROLOL FUMARATE
     Indication: PRODUCT USED FOR UNKNOWN INDICATION
     Route: 065
  11. PROLOPA [Concomitant]
     Active Substance: BENSERAZIDE\LEVODOPA
     Indication: PARKINSON^S DISEASE
     Route: 048
  12. RIVOTRIL [Concomitant]
     Active Substance: CLONAZEPAM
     Indication: PRODUCT USED FOR UNKNOWN INDICATION
     Route: 065
  13. LORAMET [Concomitant]
     Active Substance: LORMETAZEPAM
     Indication: PRODUCT USED FOR UNKNOWN INDICATION
     Route: 065
  14. DUODOPA [Suspect]
     Active Substance: CARBIDOPA\LEVODOPA
     Dosage: MD: 2.5ML; CD: 3.3 ML/H FOR 16HRS; ED: 2.2ML
     Route: 050
     Dates: start: 2019, end: 20191206
  15. DUODOPA [Suspect]
     Active Substance: CARBIDOPA\LEVODOPA
     Dosage: MD: 2.5ML; CD: 3ML/H FOR 16HRS; ED: 1.5ML
     Route: 050
     Dates: start: 20191206, end: 20191224
  16. DUODOPA [Suspect]
     Active Substance: CARBIDOPA\LEVODOPA
     Dosage: MD=2ML; CD=2.6ML/H FOR 16HRS; ED=1.5ML
     Route: 050
     Dates: start: 20200522, end: 20200618
  17. DUODOPA [Suspect]
     Active Substance: CARBIDOPA\LEVODOPA
     Dosage: DOSES CONTINUOUSLY MONITORED AND ADAPTED
     Route: 050
     Dates: start: 20170407, end: 20190102
  18. DUODOPA [Suspect]
     Active Substance: CARBIDOPA\LEVODOPA
     Dosage: MD= 2.3ML CD= 2.8ML/HR DURING 16HRS ED= 2.2ML
     Route: 050
     Dates: start: 20190321, end: 20190430
  19. DUODOPA [Suspect]
     Active Substance: CARBIDOPA\LEVODOPA
     Dosage: MD: 2.5ML; CD: 3.2ML/H FOR 16HRS; ED: 1.5ML
     Route: 050
     Dates: start: 20191224, end: 20200225
  20. DUODOPA [Suspect]
     Active Substance: CARBIDOPA\LEVODOPA
     Dosage: MD=2ML; CD=2.3ML/H FOR 16HRS; ED=1.5ML
     Route: 050
     Dates: start: 20201103, end: 202011
  21. DUODOPA [Suspect]
     Active Substance: CARBIDOPA\LEVODOPA
     Dosage: MD= 2.3ML CD= 2.8ML/HR DURING 16HRS ED= 1.9ML
     Route: 050
     Dates: start: 20190128, end: 20190321
  22. DUODOPA [Suspect]
     Active Substance: CARBIDOPA\LEVODOPA
     Dosage: MD=2ML; CD=2.3ML/H FOR 16HRS; ED=1.5ML
     Route: 050
     Dates: start: 20200618, end: 2020
  23. DUODOPA [Suspect]
     Active Substance: CARBIDOPA\LEVODOPA
     Dosage: MD=2ML; CD=2.3ML/H FOR 16HRS; ED=1.5ML
     Route: 050
     Dates: start: 202011
  24. DUODOPA [Suspect]
     Active Substance: CARBIDOPA\LEVODOPA
     Dosage: MD: 2.5ML; CD: 3.1 ML/H FOR 16HRS; ED: 2.2ML
     Route: 050
     Dates: start: 20190506, end: 2019
  25. DUODOPA [Suspect]
     Active Substance: CARBIDOPA\LEVODOPA
     Dosage: MD: 2.5ML; CD: 2.9ML/H FOR 16HRS; ED: 1.5ML
     Route: 050
     Dates: start: 20200225, end: 202005
  26. PANTOPRAZOLE [Concomitant]
     Active Substance: PANTOPRAZOLE
     Indication: PRODUCT USED FOR UNKNOWN INDICATION
     Route: 065

REACTIONS (27)
  - Device placement issue [Unknown]
  - Dyskinesia [Recovered/Resolved]
  - Freezing phenomenon [Recovered/Resolved]
  - Off label use [Recovered/Resolved]
  - Medical device site vesicles [Unknown]
  - Stoma site discharge [Not Recovered/Not Resolved]
  - Stress [Not Recovered/Not Resolved]
  - Stoma site hypergranulation [Recovered/Resolved]
  - Drug ineffective [Unknown]
  - On and off phenomenon [Unknown]
  - Stoma site erythema [Recovering/Resolving]
  - Device issue [Recovered/Resolved]
  - Restlessness [Unknown]
  - Device occlusion [Recovered/Resolved]
  - Coronary arterial stent insertion [Unknown]
  - Extra dose administered [Unknown]
  - Skin lesion [Unknown]
  - Insomnia [Unknown]
  - Urinary tract infection [Unknown]
  - Dyskinesia [Recovered/Resolved]
  - Nervousness [Unknown]
  - Tremor [Unknown]
  - Therapeutic product effect incomplete [Unknown]
  - Stoma site erythema [Recovered/Resolved]
  - Dyskinesia [Not Recovered/Not Resolved]
  - Unevaluable event [Unknown]
  - Freezing phenomenon [Recovered/Resolved]

NARRATIVE: CASE EVENT DATE: 2019
